FAERS Safety Report 6680965-8 (Version None)
Quarter: 2010Q2

REPORT INFORMATION
  Report Type: 
  Country: None (occurrence: None)
  Receive Date: 20100412
  Receipt Date: 20100330
  Transmission Date: 20101027
  Serious: Yes (Hospitalization)
  Sender: FDA-Public Use
  Company Number: 6059258

PATIENT
  Age: 57 Year
  Sex: Female

DRUGS (4)
  1. LEVOTHYROX (LEVOTHYROXINE SODIUM) (62.5 MICROGRAM, [Suspect]
     Indication: POST PROCEDURAL HYPOTHYROIDISM
     Dosage: 1 DF ORAL
     Route: 048
     Dates: start: 19810101
  2. PREVISCAN (FLUINDIONE) (20 MG, TABLET) (FLUINDIONE) [Suspect]
     Indication: VENOUS THROMBOSIS
     Dosage: 1 DF ORAL
     Route: 048
     Dates: start: 20091117, end: 20091126
  3. ARIXTRA (FONDAPARINUX SODIUM) (INJECTION) (FONDAPARINUX SODIUM) [Suspect]
     Indication: VENOUS THROMBOSIS
     Dosage: 1 DF SUBCUTANEOUS
     Route: 058
     Dates: start: 20091116, end: 20091123
  4. SEROPLEX (ESCITALOPRAM OXALATE) (10 MG, COATED TABLET) (ESCITALOPRAM O [Suspect]
     Indication: DRUG USE FOR UNKNOWN INDICATION
     Dosage: 1 DF ORAL
     Route: 048
     Dates: start: 20060601

REACTIONS (3)
  - DEEP VEIN THROMBOSIS [None]
  - MUSCLE HAEMORRHAGE [None]
  - SCIATICA [None]
